FAERS Safety Report 9171903 (Version 2)
Quarter: 2013Q2

REPORT INFORMATION
  Report Type: Spontaneous
  Country: US (occurrence: None)
  Receive Date: 20130318
  Receipt Date: 20130510
  Transmission Date: 20140414
  Serious: Yes (Death)
  Sender: FDA-Public Use
  Company Number: ADR-2013UNK043

PATIENT
  Age: 77 Day
  Sex: 0

DRUGS (3)
  1. EFAVIRENZ [Suspect]
     Indication: ACQUIRED IMMUNODEFICIENCY SYNDROME
     Dosage: 1 COURSE + ORAL
     Route: 048
     Dates: start: 20110516, end: 20110521
  2. TRUVADA,TVD [Concomitant]
  3. KALETRA,ALUVIA,LPV/R [Concomitant]

REACTIONS (2)
  - Abortion induced [None]
  - Exposure during pregnancy [None]
